FAERS Safety Report 22068942 (Version 1)
Quarter: 2023Q1

REPORT INFORMATION
  Report Type: Spontaneous
  Country: US (occurrence: None)
  Receive Date: 20230306
  Receipt Date: 20230306
  Transmission Date: 20230417
  Serious: Yes (Other)
  Sender: FDA-Public Use
  Company Number: None

PATIENT
  Sex: Female

DRUGS (3)
  1. AMLODIPINE [Suspect]
     Active Substance: AMLODIPINE BESYLATE
     Indication: Migraine
     Dosage: FREQUENCY : DAILY;?
     Route: 048
     Dates: start: 2017
  2. TYLENOL [Suspect]
     Active Substance: ACETAMINOPHEN
     Indication: Migraine
     Dosage: OTHER QUANTITY : 500-600MG;?FREQUENCY : AS NEEDED;?
     Route: 048
     Dates: start: 2017
  3. CANNABIS SATIVA SUBSP. INDICA TOP [Suspect]
     Active Substance: CANNABIS SATIVA SUBSP. INDICA TOP

REACTIONS (3)
  - Pregnancy [None]
  - Exposure during pregnancy [None]
  - Abortion spontaneous [None]
